FAERS Safety Report 8614323-3 (Version None)
Quarter: 2012Q3

REPORT INFORMATION
  Report Type: 
  Country: None (occurrence: None)
  Receive Date: 20120823
  Receipt Date: 20120816
  Transmission Date: 20120928
  Serious: Yes (Death, Life-Threatening, Hospitalization, Other)
  Sender: FDA-Public Use
  Company Number: FR-MILLENNIUM PHARMACEUTICALS, INC.-2012-03924

PATIENT

DRUGS (29)
  1. VELCADE [Suspect]
     Indication: MULTIPLE MYELOMA
     Dosage: 2.1 MG, UNK
     Route: 058
     Dates: start: 20120522, end: 20120529
  2. CEFTRIAXONE [Concomitant]
     Dosage: 2 G, QD
     Route: 042
     Dates: start: 20120601
  3. PRIMPERAN                          /00041901/ [Concomitant]
     Indication: NAUSEA
     Dosage: 10 MG, UNK
     Route: 048
     Dates: start: 20120523, end: 20120528
  4. ACETAMINOPHEN [Concomitant]
     Dosage: 1 G, TID
     Route: 042
     Dates: start: 20120528, end: 20120529
  5. ZELITREX                           /01269701/ [Concomitant]
     Indication: PROPHYLAXIS
     Dosage: 500 MG, BID
     Route: 048
     Dates: start: 20120521
  6. FENTANYL [Concomitant]
     Indication: PAIN PROPHYLAXIS
     Dosage: UNK, QD
     Route: 042
     Dates: start: 20120601
  7. ATRACURIUM BESYLATE [Concomitant]
     Indication: ANAESTHESIA
     Dosage: UNK, QD
     Route: 042
     Dates: start: 20120601
  8. KARDEGIC                           /00002703/ [Concomitant]
     Indication: PROPHYLAXIS
     Dosage: 75 MG, QD
     Route: 048
     Dates: start: 20100420, end: 20120531
  9. OXYCONTIN [Concomitant]
     Indication: BACK PAIN
     Dosage: 10 MG, BID
     Route: 048
     Dates: start: 20120514, end: 20120515
  10. OXYGEN [Concomitant]
     Dosage: 15 L, UNK
     Route: 045
     Dates: start: 20120601
  11. TRANXENE [Concomitant]
     Indication: FEELING OF RELAXATION
     Dosage: 20 MG, QD
     Route: 042
     Dates: start: 20120528, end: 20120529
  12. PRIMPERAN                          /00041901/ [Concomitant]
     Dosage: 10 MG, UNK
     Route: 042
     Dates: start: 20120521, end: 20120523
  13. BUMETANIDE [Concomitant]
     Indication: PROPHYLAXIS
     Dosage: 5 MG, UNK
     Route: 042
     Dates: start: 20120601
  14. CRESTOR [Concomitant]
     Indication: HYPERCHOLESTEROLAEMIA
     Dosage: UNK, QD
     Route: 048
     Dates: end: 20120521
  15. JNJ-26481585 [Suspect]
     Indication: MULTIPLE MYELOMA
     Dosage: 12 MG, UNK
     Route: 048
     Dates: start: 20120521, end: 20120531
  16. DEXAMETHASONE [Suspect]
     Indication: MULTIPLE MYELOMA
     Dosage: 20 MG, UNK
     Route: 048
     Dates: start: 20120522, end: 20120529
  17. PRIMPERAN                          /00041901/ [Concomitant]
     Dosage: 10 UNK, UNK
     Route: 042
     Dates: start: 20120529, end: 20120529
  18. HYDROCORTISONE [Concomitant]
     Indication: PROPHYLAXIS
     Dosage: 250 MG, QD
     Route: 042
     Dates: start: 20120601
  19. ONDANSETRON [Concomitant]
     Dosage: 8 MG, QD
     Route: 048
     Dates: start: 20120525, end: 20120525
  20. ONDANSETRON [Concomitant]
     Dosage: 8 MG, BID
     Route: 042
     Dates: start: 20120529
  21. ONDANSETRON [Concomitant]
     Dosage: 8 MG, BID
     Route: 042
     Dates: start: 20120529
  22. IMPORTAL [Concomitant]
     Indication: CONSTIPATION
     Dosage: UNK, QD
     Route: 048
     Dates: end: 20120528
  23. TRAMADOL HCL [Concomitant]
     Indication: BACK PAIN
     Dosage: 100 MG, BID
     Route: 048
     Dates: start: 20120515, end: 20120528
  24. NORADRENALINE                      /00127501/ [Concomitant]
     Dosage: UNK UNK, QD
     Route: 042
     Dates: start: 20120601
  25. TRAMADOL HCL [Concomitant]
     Dosage: 50 MG, QID
     Route: 042
     Dates: start: 20120529
  26. MORPHINE [Concomitant]
     Dosage: 10 MG, UNK
     Route: 042
     Dates: start: 20120528, end: 20120529
  27. FUROSEMIDE [Concomitant]
     Indication: PROPHYLAXIS
     Dosage: 40 MG, QD
     Route: 042
     Dates: start: 20120601
  28. MIDAZOLAM [Concomitant]
     Dosage: 10.5 UNK, UNK
     Route: 042
     Dates: start: 20120601
  29. TRAMADOL HCL [Concomitant]
     Dosage: 50 MG, QID
     Route: 042
     Dates: start: 20120529

REACTIONS (5)
  - HYPOTENSION [None]
  - ELECTROCARDIOGRAM QT PROLONGED [None]
  - THROMBOCYTOPENIA [None]
  - DYSPNOEA [None]
  - BACK PAIN [None]
